FAERS Safety Report 17110608 (Version 1)
Quarter: 2019Q4

REPORT INFORMATION
  Report Type: Spontaneous
  Country: US (occurrence: US)
  Receive Date: 20191108
  Receipt Date: 20191108
  Transmission Date: 20200122
  Serious: Yes (Hospitalization)
  Sender: FDA-Public Use
  Company Number: None

PATIENT
  Age: 62 Year
  Sex: Male
  Weight: 76.7 kg

DRUGS (2)
  1. CARBOPLATIN. [Suspect]
     Active Substance: CARBOPLATIN
     Dates: end: 20191030
  2. TAXOTERE [Suspect]
     Active Substance: DOCETAXEL
     Dates: end: 20191030

REACTIONS (12)
  - Fatigue [None]
  - Weight decreased [None]
  - Decreased appetite [None]
  - Nausea [None]
  - Hypophagia [None]
  - Alanine aminotransferase increased [None]
  - Aspartate aminotransferase increased [None]
  - Malaise [None]
  - Muscular weakness [None]
  - Dehydration [None]
  - Blood creatine increased [None]
  - Neutropenia [None]

NARRATIVE: CASE EVENT DATE: 20191106
